FAERS Safety Report 20083302 (Version 1)
Quarter: 2021Q4

REPORT INFORMATION
  Report Type: Spontaneous
  Country: US (occurrence: None)
  Receive Date: 20211117
  Receipt Date: 20211117
  Transmission Date: 20220303
  Serious: No
  Sender: FDA-Public Use
  Company Number: 2021A781373

PATIENT

DRUGS (1)
  1. SAPHNELO [Suspect]
     Active Substance: ANIFROLUMAB-FNIA
     Indication: Central nervous system lupus
     Route: 042
     Dates: start: 20211014

REACTIONS (2)
  - Throat tightness [Recovered/Resolved]
  - Heart rate increased [Recovered/Resolved]
